FAERS Safety Report 9522174 (Version 2)
Quarter: 2014Q4

REPORT INFORMATION
  Report Type: Spontaneous
  Country: US (occurrence: US)
  Receive Date: 20130913
  Receipt Date: 20141014
  Transmission Date: 20150529
  Serious: Yes (Hospitalization, Other)
  Sender: FDA-Public Use
  Company Number: US-BAYER-2013-110407

PATIENT
  Age: 19 Year
  Sex: Female
  Weight: 55.78 kg

DRUGS (3)
  1. ADDERALL [Concomitant]
     Active Substance: AMPHETAMINE ASPARTATE\AMPHETAMINE SULFATE\DEXTROAMPHETAMINE SACCHARATE\DEXTROAMPHETAMINE SULFATE
     Indication: ATTENTION DEFICIT/HYPERACTIVITY DISORDER
     Dosage: 10 MG, UNK
     Dates: start: 2001
  2. MIRENA [Suspect]
     Active Substance: LEVONORGESTREL
     Indication: CONTRACEPTION
     Dosage: 20 MCG/24HR, CONT
     Route: 015
     Dates: start: 20060817, end: 20061109
  3. ABILIFY [Concomitant]
     Active Substance: ARIPIPRAZOLE
     Indication: BIPOLAR DISORDER
     Dosage: 15 MG, UNK
     Dates: start: 2003, end: 2013

REACTIONS (12)
  - Depression [None]
  - Emotional distress [None]
  - Anxiety [None]
  - Scar [None]
  - Depressed mood [None]
  - Device issue [None]
  - Injury [None]
  - Device dislocation [None]
  - Internal injury [None]
  - Infertility female [None]
  - Pain [None]
  - Medical device complication [None]

NARRATIVE: CASE EVENT DATE: 200610
